FAERS Safety Report 6888429-3 (Version None)
Quarter: 2010Q3

REPORT INFORMATION
  Report Type: 
  Country: None (occurrence: None)
  Receive Date: 20100730
  Receipt Date: 20100726
  Transmission Date: 20110219
  Serious: Yes (Hospitalization)
  Sender: FDA-Public Use
  Company Number: US-B.I. PHARMACEUTICALS,INC./RIDGEFIELD-2010-BP-08425BP

PATIENT
  Sex: Female

DRUGS (2)
  1. CATAPRES-TTS-1 [Suspect]
     Indication: HYPERTENSION
     Route: 061
     Dates: start: 20090101, end: 20090601
  2. QUINIDEX [Suspect]
     Indication: CARDIAC DISORDER

REACTIONS (4)
  - CARDIAC DISORDER [None]
  - DECREASED APPETITE [None]
  - HALLUCINATION, VISUAL [None]
  - WEIGHT DECREASED [None]
